FAERS Safety Report 24922835 (Version 1)
Quarter: 2025Q1

REPORT INFORMATION
  Report Type: Spontaneous
  Country: FR (occurrence: FR)
  Receive Date: 20250204
  Receipt Date: 20250204
  Transmission Date: 20250408
  Serious: Yes (Life-Threatening, Other)
  Sender: FRESENIUS KABI
  Company Number: FR-AFSSAPS-AVMA2024000603

PATIENT
  Age: 39 Year
  Sex: Male

DRUGS (11)
  1. ACETAMINOPHEN [Suspect]
     Active Substance: ACETAMINOPHEN
     Indication: Family stress
  2. ACETAMINOPHEN [Suspect]
     Active Substance: ACETAMINOPHEN
     Indication: Depression
  3. DICLOFENAC [Suspect]
     Active Substance: DICLOFENAC
     Indication: Depression
  4. DICLOFENAC [Suspect]
     Active Substance: DICLOFENAC
     Indication: Family stress
  5. MIDOMAFETAMINE [Suspect]
     Active Substance: MIDOMAFETAMINE
     Indication: Product used for unknown indication
  6. BROMAZEPAM [Suspect]
     Active Substance: BROMAZEPAM
     Indication: Depression
  7. BROMAZEPAM [Suspect]
     Active Substance: BROMAZEPAM
     Indication: Family stress
  8. ALCOHOL [Suspect]
     Active Substance: ALCOHOL
     Indication: Depression
  9. ALCOHOL [Suspect]
     Active Substance: ALCOHOL
     Indication: Family stress
  10. CANNABIS SATIVA FLOWERING TOP [Suspect]
     Active Substance: CANNABIS SATIVA FLOWERING TOP
     Indication: Product used for unknown indication
  11. VENTOLIN [Concomitant]
     Active Substance: ALBUTEROL SULFATE
     Indication: Product used for unknown indication

REACTIONS (4)
  - Coma [Recovered/Resolved]
  - Drug use disorder [Unknown]
  - Suicidal ideation [Unknown]
  - Toxicity to various agents [Unknown]

NARRATIVE: CASE EVENT DATE: 20240714
